FAERS Safety Report 6611813-X (Version None)
Quarter: 2010Q1

REPORT INFORMATION
  Report Type: 
  Country: None (occurrence: None)
  Receive Date: 20100303
  Receipt Date: 20100222
  Transmission Date: 20100710
  Serious: Yes (Hospitalization)
  Sender: FDA-Public Use
  Company Number: GB-ROCHE-685035

PATIENT
  Age: 34 Year
  Sex: Male

DRUGS (2)
  1. PEGASYS [Suspect]
     Indication: HEPATITIS C
     Dosage: DOSE: 180 NO UNITS PROVIDED
     Route: 065
  2. COPEGUS [Suspect]
     Indication: HEPATITIS C
     Dosage: DOSE: 800 NO UNITS PROVIDED
     Route: 065

REACTIONS (4)
  - DISORIENTATION [None]
  - DISTURBANCE IN ATTENTION [None]
  - EPILEPSY [None]
  - MOOD ALTERED [None]
